FAERS Safety Report 21674552 (Version 1)
Quarter: 2022Q4

REPORT INFORMATION
  Report Type: Spontaneous
  Country: None (occurrence: US)
  Receive Date: 20221202
  Receipt Date: 20221202
  Transmission Date: 20230113
  Serious: Yes (Death)
  Sender: FDA-Public Use
  Company Number: US-Vero Biotech-2135480

PATIENT
  Age: 0 Year

DRUGS (2)
  1. GENOSYL [Suspect]
     Active Substance: NITRIC OXIDE
     Indication: Hypoxia
     Route: 055
     Dates: start: 20221117, end: 20221117
  2. GENOSYL [Suspect]
     Active Substance: NITRIC OXIDE

REACTIONS (2)
  - Multiple cardiac defects [Fatal]
  - Device malfunction [None]

NARRATIVE: CASE EVENT DATE: 20221117
